FAERS Safety Report 11331914 (Version 1)
Quarter: 2015Q3

REPORT INFORMATION
  Report Type: Spontaneous
  Country: US (occurrence: US)
  Receive Date: 20150803
  Receipt Date: 20150803
  Transmission Date: 20151125
  Serious: No
  Sender: FDA-Public Use
  Company Number: US-ELI_LILLY_AND_COMPANY-US200805004487

PATIENT
  Age: 30 Year
  Sex: Female

DRUGS (2)
  1. ZYPREXA ZYDIS [Suspect]
     Active Substance: OLANZAPINE
     Dosage: 10 MG, AS NEEDED
  2. ZYPREXA ZYDIS [Suspect]
     Active Substance: OLANZAPINE
     Dosage: 20 MG, AS NEEDED

REACTIONS (2)
  - Glossodynia [Recovered/Resolved]
  - Oral discomfort [Recovered/Resolved]
